FAERS Safety Report 5170557-4 (Version None)
Quarter: 2006Q4

REPORT INFORMATION
  Report Type: 
  Country: None (occurrence: None)
  Receive Date: 20061201
  Receipt Date: 20061123
  Transmission Date: 20070319
  Serious: Yes (Hospitalization)
  Sender: FDA-Public Use
  Company Number: 2006-146914-NL

PATIENT
  Age: 41 Year
  Sex: Female

DRUGS (8)
  1. GANIRELIX ACETATE INJECTION [Suspect]
     Indication: IN VITRO FERTILISATION
     Dosage: 0.25 MG
     Route: 058
     Dates: start: 20060818, end: 20060820
  2. GANIRELIX ACETATE INJECTION [Suspect]
     Indication: INFERTILITY
     Dosage: 0.25 MG
     Route: 058
     Dates: start: 20060818, end: 20060820
  3. CHORIONIC GONADOTROPIN [Suspect]
     Indication: IN VITRO FERTILISATION
     Dosage: 5000 IU
     Route: 058
     Dates: start: 20060821
  4. CHORIONIC GONADOTROPIN [Suspect]
     Indication: INFERTILITY
     Dosage: 5000 IU
     Route: 058
     Dates: start: 20060821
  5. FOLLITROPIN BETA [Suspect]
     Indication: IN VITRO FERTILISATION
     Dosage: 150 IU
     Route: 058
     Dates: start: 20060812, end: 20060820
  6. FOLLITROPIN BETA [Suspect]
     Indication: INFERTILITY
     Dosage: 150 IU
     Route: 058
     Dates: start: 20060812, end: 20060820
  7. CETRORELIX ACETATE [Concomitant]
  8. DESMOPRESSIN ACETATE [Concomitant]

REACTIONS (7)
  - COUGH [None]
  - DIARRHOEA [None]
  - DRUG INEFFECTIVE [None]
  - DYSPNOEA [None]
  - HYPERSENSITIVITY [None]
  - OVARIAN HYPERSTIMULATION SYNDROME [None]
  - VOMITING [None]
